FAERS Safety Report 14022707 (Version 1)
Quarter: 2017Q3

REPORT INFORMATION
  Report Type: Spontaneous
  Country: US (occurrence: US)
  Receive Date: 20170929
  Receipt Date: 20170929
  Transmission Date: 20171128
  Serious: Yes (Hospitalization, Disabling)
  Sender: FDA-Public Use
  Company Number: None

PATIENT
  Age: 84 Year
  Sex: Female

DRUGS (1)
  1. RIVAROXABAN [Suspect]
     Active Substance: RIVAROXABAN
     Route: 048

REACTIONS (5)
  - Seizure [None]
  - Subarachnoid haemorrhage [None]
  - Subdural haemorrhage [None]
  - Dysphagia [None]
  - Contusion [None]

NARRATIVE: CASE EVENT DATE: 20170725
